FAERS Safety Report 4295201-X (Version None)
Quarter: 2004Q1

REPORT INFORMATION
  Report Type: 
  Country: None (occurrence: None)
  Receive Date: 20040213
  Receipt Date: 20040128
  Transmission Date: 20041129
  Serious: Yes (Hospitalization)
  Sender: FDA-Public Use
  Company Number: 173459

PATIENT
  Sex: Male
  Weight: 82.1011 kg

DRUGS (5)
  1. AVONEX [Suspect]
     Indication: MULTIPLE SCLEROSIS
     Dosage: 30 MCG QW IM
     Route: 030
  2. AVONEX [Suspect]
     Indication: MULTIPLE SCLEROSIS
     Dosage: 30 MCG QW IM
     Route: 030
  3. PROZAC [Concomitant]
  4. RITALIN [Concomitant]
  5. BACLOFEN [Concomitant]

REACTIONS (7)
  - COLON CANCER [None]
  - DIFFICULTY IN WALKING [None]
  - GASTROINTESTINAL INFECTION [None]
  - MEMORY IMPAIRMENT [None]
  - MULTIPLE SCLEROSIS [None]
  - NOSOCOMIAL INFECTION [None]
  - WEIGHT DECREASED [None]
